FAERS Safety Report 7750739-5 (Version None)
Quarter: 2011Q3

REPORT INFORMATION
  Report Type: 
  Country: None (occurrence: None)
  Receive Date: 20110914
  Receipt Date: 20110913
  Transmission Date: 20111222
  Serious: Yes (Death, Hospitalization)
  Sender: FDA-Public Use
  Company Number: JP-B.I. PHARMACEUTICALS,INC./RIDGEFIELD-2011-BP-20172NB

PATIENT
  Sex: Female
  Weight: 48 kg

DRUGS (14)
  1. DOXAZOSIN MESYLATE [Concomitant]
     Indication: HYPERTENSION
     Dosage: 2 MG
     Route: 048
  2. ADALAT [Concomitant]
     Indication: HYPERPHOSPHATAEMIA
     Dosage: 60 MG
     Route: 048
  3. ALFAROL [Concomitant]
     Dosage: 0.25 MCG
     Route: 048
  4. PURSENNID [Concomitant]
     Indication: CONSTIPATION
     Dosage: 12 MG
     Route: 048
  5. TRANEXAMIC ACID [Concomitant]
     Indication: DIALYSIS
     Dosage: 750 MG
     Route: 048
  6. PRADAXA [Suspect]
     Indication: THROMBOSIS PROPHYLAXIS
     Dosage: 220 MG
     Route: 048
     Dates: start: 20110722, end: 20110801
  7. ALDOMET [Concomitant]
     Dosage: 1125 MG
     Route: 065
  8. FOSRENOL [Concomitant]
     Dosage: 1500 MG
     Route: 048
  9. ASPIRIN [Suspect]
     Indication: THROMBOSIS PROPHYLAXIS
     Dosage: 100 MG
     Route: 065
     Dates: start: 20080917, end: 20110801
  10. LASIX [Concomitant]
     Dosage: 40 MG
     Route: 065
  11. EXFORGE [Concomitant]
     Indication: HYPERTENSION
     Route: 048
     Dates: start: 20110201
  12. CALCIUM COMPOUNDS AND PREPARATIONS [Concomitant]
     Indication: HYPERPHOSPHATAEMIA
     Dosage: 2000 MG
     Route: 065
  13. RABEPRAZOLE SODIUM [Concomitant]
     Dosage: 10 MG
     Route: 048
  14. MUCODYNE [Concomitant]
     Dosage: 150 MG
     Route: 048
     Dates: start: 20110722

REACTIONS (1)
  - CEREBRAL HAEMORRHAGE [None]
